FAERS Safety Report 5158137-8 (Version None)
Quarter: 2006Q4

REPORT INFORMATION
  Report Type: 
  Country: None (occurrence: None)
  Receive Date: 20061120
  Receipt Date: 20061120
  Transmission Date: 20070319
  Serious: Yes (Life-Threatening, Disabling)
  Sender: FDA-Public Use
  Company Number: None

PATIENT
  Age: 47 Year
  Sex: Male
  Weight: 88.4514 kg

DRUGS (6)
  1. ZOLOFT [Suspect]
     Indication: SCIATIC NERVE NEUROPATHY
  2. LEXAPRO [Suspect]
  3. ZOLOFT [Concomitant]
  4. LEXAPRO [Concomitant]
  5. BISPIRONE [Concomitant]
  6. ZOMIG [Concomitant]

REACTIONS (1)
  - SEROTONIN SYNDROME [None]
